FAERS Safety Report 18427360 (Version 2)
Quarter: 2020Q4

REPORT INFORMATION
  Report Type: Spontaneous
  Country: AT (occurrence: AT)
  Receive Date: 20201026
  Receipt Date: 20201201
  Transmission Date: 20210114
  Serious: Yes (Other)
  Sender: FDA-Public Use
  Company Number: NVSC2020AT283229

PATIENT
  Age: 49 Year
  Sex: Male

DRUGS (1)
  1. ADALIMUMAB [Suspect]
     Active Substance: ADALIMUMAB
     Indication: RHEUMATOID ARTHRITIS
     Dosage: SINGLE DOSE
     Route: 065

REACTIONS (2)
  - Glomerulonephritis proliferative [Recovering/Resolving]
  - Glomerulonephritis rapidly progressive [Recovering/Resolving]
